FAERS Safety Report 25723792 (Version 2)
Quarter: 2025Q3

REPORT INFORMATION
  Report Type: Report from Study
  Country: US (occurrence: US)
  Receive Date: 20250825
  Receipt Date: 20250830
  Transmission Date: 20251021
  Serious: Yes (Other)
  Sender: NOVARTIS
  Company Number: US-002147023-NVSC2025US132568

PATIENT
  Sex: Female

DRUGS (1)
  1. KISQALI [Suspect]
     Active Substance: RIBOCICLIB SUCCINATE
     Indication: Product used for unknown indication
     Dosage: 600 MG, TID
     Route: 048

REACTIONS (3)
  - Metastasis [Unknown]
  - Disease progression [Unknown]
  - Product use issue [Unknown]
